FAERS Safety Report 21404192 (Version 3)
Quarter: 2023Q1

REPORT INFORMATION
  Report Type: Spontaneous
  Country: CA (occurrence: CA)
  Receive Date: 20221003
  Receipt Date: 20230109
  Transmission Date: 20230418
  Serious: Yes (Hospitalization, Other)
  Sender: FDA-Public Use
  Company Number: CA-PFIZER INC-202201195746

PATIENT
  Age: 59 Year
  Sex: Female

DRUGS (9)
  1. SULFASALAZINE [Suspect]
     Active Substance: SULFASALAZINE
     Dosage: 1 DF
  2. CIPRALEX [Concomitant]
     Active Substance: ESCITALOPRAM OXALATE
     Dosage: UNK, DOSE + FREQUENCY UNSPECIFIED
  3. METHOTREXATE SODIUM [Concomitant]
     Active Substance: METHOTREXATE SODIUM
     Dosage: 1 DF
     Dates: start: 2012, end: 2020
  4. METHOTREXATE SODIUM [Concomitant]
     Active Substance: METHOTREXATE SODIUM
     Dosage: 20 MG, WEEKLY
     Route: 048
     Dates: start: 2012, end: 2021
  5. NEXIUM [Concomitant]
     Active Substance: ESOMEPRAZOLE MAGNESIUM
     Dosage: UNK(DOSE + FREQUENCY UNSPECIFIED)
  6. PLAQUENIL [Concomitant]
     Active Substance: HYDROXYCHLOROQUINE SULFATE
     Indication: Arthritis
     Dosage: UNK, DOSE + FREQUENCY UNSPECIFIED
  7. PLAQUENIL [Concomitant]
     Active Substance: HYDROXYCHLOROQUINE SULFATE
     Dosage: 1 DF, 200MG-400MG TAPERED TO 300MG
     Route: 048
  8. RITUXIMAB [Concomitant]
     Active Substance: RITUXIMAB
     Indication: Rheumatoid arthritis
     Dosage: 1000 MG, DAY 1 AND DAY 15
     Route: 042
     Dates: start: 20221128, end: 20221212
  9. LEVOTHYROXINE [Concomitant]
     Active Substance: LEVOTHYROXINE
     Dosage: DOSE + FREQUENCY UNSPECIFIED

REACTIONS (5)
  - Pulmonary embolism [Unknown]
  - COVID-19 [Unknown]
  - Drug intolerance [Unknown]
  - Gastrointestinal disorder [Not Recovered/Not Resolved]
  - Arthralgia [Unknown]
